FAERS Safety Report 9225954 (Version 1)
Quarter: 2013Q2

REPORT INFORMATION
  Report Type: Spontaneous
  Country: US (occurrence: US)
  Receive Date: 20130411
  Receipt Date: 20130411
  Transmission Date: 20140414
  Serious: No
  Sender: FDA-Public Use
  Company Number: US-ASTELLAS-2012US002915

PATIENT
  Sex: 0

DRUGS (5)
  1. PROTOPIC [Suspect]
     Indication: VITILIGO
     Dosage: 0.1% ONCE TO TWICE DAILY
     Route: 061
     Dates: start: 201111
  2. LEXAPRO [Concomitant]
     Indication: DEPRESSION
     Dosage: 10 MG, UID/QD
     Route: 048
  3. AMBIEN [Concomitant]
     Indication: SLEEP DISORDER
     Dosage: 10 MG, UID/QD
     Route: 048
  4. NEXIUM [Concomitant]
     Indication: GASTRITIS
     Dosage: 40 MG, UID/QD
     Route: 048
  5. CRESTOR [Concomitant]
     Indication: BLOOD CHOLESTEROL
     Dosage: 10 MG, UID/QD
     Route: 048

REACTIONS (2)
  - Off label use [Unknown]
  - Blister [Unknown]
